FAERS Safety Report 25342346 (Version 1)
Quarter: 2025Q2

REPORT INFORMATION
  Report Type: Spontaneous
  Country: US (occurrence: US)
  Receive Date: 20250521
  Receipt Date: 20250521
  Transmission Date: 20250716
  Serious: No
  Sender: CATALYST PHARMA
  Company Number: US-CATALYST PHARMACEUTICALS-US-CATA-25-00151

PATIENT
  Age: 9 Year
  Sex: Male
  Weight: 43.492 kg

DRUGS (4)
  1. AGAMREE [Suspect]
     Active Substance: VAMOROLONE
     Indication: Duchenne muscular dystrophy
     Dosage: 6.5ML DAILY
     Route: 048
     Dates: start: 20241220
  2. ATALUREN [Concomitant]
     Active Substance: ATALUREN
     Indication: Duchenne muscular dystrophy
     Dosage: 40MG/KG PER DAY DAILY
     Route: 065
  3. VITAMIN D3 [Concomitant]
     Active Substance: CHOLECALCIFEROL
     Indication: Hypovitaminosis
     Dosage: 50MCG (2000 UNITS) DAILY
     Route: 048
  4. CHILDREN^S MULTIVITAMIN [Concomitant]
     Indication: Hypovitaminosis
     Dosage: 1 TABLET DAILY
     Route: 048

REACTIONS (1)
  - Gastroenteritis viral [Recovered/Resolved]

NARRATIVE: CASE EVENT DATE: 20250117
